FAERS Safety Report 11255740 (Version 4)
Quarter: 2016Q1

REPORT INFORMATION
  Report Type: Report from Study
  Country: JP (occurrence: JP)
  Receive Date: 20150709
  Receipt Date: 20160219
  Transmission Date: 20160525
  Serious: Yes (Death, Life-Threatening)
  Sender: FDA-Public Use
  Company Number: JP-SA-2015SA098158

PATIENT
  Age: 15 Year
  Sex: Male

DRUGS (8)
  1. DALACIN [Concomitant]
     Active Substance: CLINDAMYCIN\CLINDAMYCIN PHOSPHATE
     Route: 042
     Dates: start: 20141029, end: 20141105
  2. ETOPOSIDE. [Suspect]
     Active Substance: ETOPOSIDE
     Indication: ACUTE LYMPHOCYTIC LEUKAEMIA
     Route: 042
     Dates: start: 20141023, end: 20141027
  3. AMPHOTERICIN B. [Concomitant]
     Active Substance: AMPHOTERICIN B
  4. ZOSYN [Concomitant]
     Active Substance: PIPERACILLIN SODIUM\TAZOBACTAM SODIUM
     Route: 042
     Dates: start: 20141105, end: 20141107
  5. EVOLTRA [Suspect]
     Active Substance: CLOFARABINE
     Indication: ACUTE LYMPHOCYTIC LEUKAEMIA
     Route: 042
     Dates: start: 20141023, end: 20141027
  6. OMEPRAL [Concomitant]
     Active Substance: OMEPRAZOLE
     Route: 042
     Dates: start: 20141028, end: 20141205
  7. CYCLOPHOSPHAMIDE. [Suspect]
     Active Substance: CYCLOPHOSPHAMIDE
     Indication: ACUTE LYMPHOCYTIC LEUKAEMIA
     Route: 042
     Dates: start: 20141023, end: 20141027
  8. MEROPEN [Concomitant]
     Active Substance: MEROPENEM
     Route: 042
     Dates: start: 20141107, end: 20141117

REACTIONS (5)
  - Febrile neutropenia [Recovering/Resolving]
  - Haematotoxicity [Recovered/Resolved]
  - Pericardial effusion [Recovering/Resolving]
  - Herpes zoster [Recovered/Resolved]
  - Bronchopulmonary aspergillosis [Not Recovered/Not Resolved]

NARRATIVE: CASE EVENT DATE: 20141029
